FAERS Safety Report 6616677-6 (Version None)
Quarter: 2010Q1

REPORT INFORMATION
  Report Type: 
  Country: None (occurrence: None)
  Receive Date: 20100305
  Receipt Date: 20100223
  Transmission Date: 20100710
  Serious: Yes (Hospitalization)
  Sender: FDA-Public Use
  Company Number: DE-ELI_LILLY_AND_COMPANY-DE201002006478

PATIENT
  Sex: Male
  Weight: 115.2 kg

DRUGS (4)
  1. SOMATROPIN [Suspect]
     Dosage: 0.3 MG, UNK
     Dates: start: 20040401
  2. PRAVIDEL [Concomitant]
     Indication: HYPERPROLACTINAEMIA
     Dosage: 2.5, DAILY (1/D)
  3. LEVOTHYROXINE SODIUM [Concomitant]
     Indication: THYROID DISORDER
     Dosage: 175, DAILY (1/D)
     Dates: start: 20090201
  4. NEBIDO                             /00103107/ [Concomitant]
     Indication: HYPOPITUITARISM
     Dosage: 1000 MG, EVERY 3 MONTHS
     Dates: start: 20070201

REACTIONS (1)
  - GOITRE [None]
